FAERS Safety Report 9658797 (Version 2)
Quarter: 2013Q4

REPORT INFORMATION
  Report Type: Spontaneous
  Country: US (occurrence: US)
  Receive Date: 20131030
  Receipt Date: 20131030
  Transmission Date: 20140711
  Serious: No
  Sender: FDA-Public Use
  Company Number: US-PURDUE-USA-2010-0056481

PATIENT
  Age: 60 Year
  Sex: Female
  Weight: 65.76 kg

DRUGS (7)
  1. OXYCONTIN (NDA 22-272) [Suspect]
     Indication: PAIN
     Dosage: 40MG DAILY AT 7AM
     Route: 048
  2. OXYCONTIN (NDA 22-272) [Suspect]
     Dosage: 60MG DAILY AT 3PM
     Dates: start: 201105
  3. OXYCONTIN (NDA 22-272) [Suspect]
     Dosage: 40MG DAILY AT 11PM
  4. TOPAMAX [Concomitant]
     Indication: PRODUCT USED FOR UNKNOWN INDICATION
     Dosage: 150 MG, HS
  5. VALIUM                             /00017001/ [Concomitant]
     Indication: PRODUCT USED FOR UNKNOWN INDICATION
     Dosage: 10-20MG HS PRN
  6. DILAUDID TABLET [Concomitant]
     Indication: PRODUCT USED FOR UNKNOWN INDICATION
     Dosage: 4 MG, PRN
  7. LEVOTHYROXIN [Concomitant]
     Indication: PRODUCT USED FOR UNKNOWN INDICATION
     Dosage: 75 MCG, DAILY

REACTIONS (8)
  - Pain [Recovered/Resolved]
  - Sneezing [Recovered/Resolved]
  - Migraine [Recovered/Resolved]
  - Drug effect decreased [Recovered/Resolved]
  - Diarrhoea [Recovered/Resolved]
  - Myalgia [Recovered/Resolved]
  - Activities of daily living impaired [Recovered/Resolved]
  - Inadequate analgesia [Recovered/Resolved]
